FAERS Safety Report 11686357 (Version 1)
Quarter: 2015Q4

REPORT INFORMATION
  Report Type: Spontaneous
  Country: AT (occurrence: AT)
  Receive Date: 20151030
  Receipt Date: 20151030
  Transmission Date: 20160304
  Serious: Yes (Other)
  Sender: FDA-Public Use
  Company Number: AT-BAYER-2015-450770

PATIENT
  Age: 27 Year
  Sex: Female

DRUGS (1)
  1. MIRENA [Suspect]
     Active Substance: LEVONORGESTREL
     Dosage: 20 MCG/24HR, CONT
     Route: 015
     Dates: start: 20140101, end: 20150309

REACTIONS (4)
  - Intentional device misuse [None]
  - Device dislocation [None]
  - Device dislocation [None]
  - Cervical conisation [None]

NARRATIVE: CASE EVENT DATE: 20150217
